FAERS Safety Report 23981658 (Version 1)
Quarter: 2024Q2

REPORT INFORMATION
  Report Type: Spontaneous
  Country: US (occurrence: None)
  Receive Date: 20240615
  Receipt Date: 20240615
  Transmission Date: 20240716
  Serious: No
  Sender: FDA-Public Use
  Company Number: None

PATIENT
  Age: 66 Year
  Sex: Female
  Weight: 55.35 kg

DRUGS (5)
  1. EVENITY [Suspect]
     Active Substance: ROMOSOZUMAB-AQQG
     Indication: Osteoporosis
     Dates: start: 20220115, end: 20230215
  2. ACTONEL [Concomitant]
     Active Substance: RISEDRONATE SODIUM
  3. VITAMINS [Concomitant]
     Active Substance: VITAMINS
  4. CALCIUM [Concomitant]
     Active Substance: CALCIUM
  5. HERBALS\TURMERIC [Concomitant]
     Active Substance: HERBALS\TURMERIC

REACTIONS (12)
  - Arthralgia [None]
  - Myalgia [None]
  - Loss of personal independence in daily activities [None]
  - Arthralgia [None]
  - Arthralgia [None]
  - Pain in extremity [None]
  - Pain in extremity [None]
  - Joint noise [None]
  - Arthritis [None]
  - Therapy change [None]
  - Drug ineffective [None]
  - Bone density decreased [None]

NARRATIVE: CASE EVENT DATE: 20220720
